FAERS Safety Report 8378634-1 (Version None)
Quarter: 2012Q2

REPORT INFORMATION
  Report Type: 
  Country: None (occurrence: None)
  Receive Date: 20120522
  Receipt Date: 20120213
  Transmission Date: 20120825
  Serious: No
  Sender: FDA-Public Use
  Company Number: US-ASTRAZENECA-2012SE09974

PATIENT
  Age: 57 Year
  Sex: Female

DRUGS (4)
  1. NEXIUM [Concomitant]
     Indication: GASTROOESOPHAGEAL REFLUX DISEASE
  2. OMEPRAZOLE [Suspect]
     Route: 048
  3. PRILOSEC OTC [Suspect]
     Route: 048
  4. PREVACID [Concomitant]

REACTIONS (2)
  - DRUG EFFECT DECREASED [None]
  - ADVERSE EVENT [None]
